FAERS Safety Report 22360429 (Version 1)
Quarter: 2023Q2

REPORT INFORMATION
  Report Type: Spontaneous
  Country: GR (occurrence: GR)
  Receive Date: 20230524
  Receipt Date: 20230524
  Transmission Date: 20230721
  Serious: Yes (Other)
  Sender: FDA-Public Use
  Company Number: GR-002147023-NVSC2023GR111063

PATIENT

DRUGS (2)
  1. RUXOLITINIB [Suspect]
     Active Substance: RUXOLITINIB
     Indication: Myelofibrosis
     Dosage: 20 MG, BID (THE ONE DAY 20 MG BID, TWO DAYS 15 MG BID)
     Route: 048
  2. RUXOLITINIB [Suspect]
     Active Substance: RUXOLITINIB
     Dosage: 15 MG, BID (THE ONE DAY 20MG BID, TWO DAYS 15MG BID)
     Route: 048

REACTIONS (2)
  - Herpes virus infection [Unknown]
  - Osteomyelitis [Unknown]
